FAERS Safety Report 23423689 (Version 2)
Quarter: 2024Q1

REPORT INFORMATION
  Report Type: Other
  Country: PK (occurrence: None)
  Receive Date: 20240119
  Receipt Date: 20240123
  Transmission Date: 20240410
  Serious: Yes (Death)
  Sender: FDA-Public Use
  Company Number: PK-ROCHE-3494992

PATIENT
  Age: 25 Year
  Sex: Male

DRUGS (1)
  1. RITUXIMAB [Suspect]
     Active Substance: RITUXIMAB
     Indication: Vasculitis
     Route: 042
     Dates: start: 20231227

REACTIONS (1)
  - Asthenia [Fatal]

NARRATIVE: CASE EVENT DATE: 20240117
